FAERS Safety Report 16576749 (Version 1)
Quarter: 2019Q3

REPORT INFORMATION
  Report Type: Spontaneous
  Country: US (occurrence: US)
  Receive Date: 20190716
  Receipt Date: 20190716
  Transmission Date: 20191004
  Serious: No
  Sender: FDA-Public Use
  Company Number: US-GLAXOSMITHKLINE-US2019126011

PATIENT
  Sex: Female

DRUGS (1)
  1. BENLYSTA [Suspect]
     Active Substance: BELIMUMAB
     Indication: PRODUCT USED FOR UNKNOWN INDICATION
     Dosage: UNK UNK, WE
     Route: 058

REACTIONS (5)
  - Feeling drunk [Unknown]
  - Administration site bruise [Not Recovered/Not Resolved]
  - Eye irritation [Unknown]
  - Injection site mass [Unknown]
  - Eye disorder [Unknown]
